FAERS Safety Report 25259378 (Version 1)
Quarter: 2025Q2

REPORT INFORMATION
  Report Type: Spontaneous
  Country: US (occurrence: None)
  Receive Date: 20250430
  Receipt Date: 20250430
  Transmission Date: 20250716
  Serious: Yes (Hospitalization)
  Sender: FDA-CTU
  Company Number: None

PATIENT
  Age: 37 Year
  Sex: Female
  Weight: 95.4 kg

DRUGS (4)
  1. BRIUMVI [Suspect]
     Active Substance: UBLITUXIMAB-XIIY
     Indication: Multiple sclerosis
     Route: 041
  2. Acetaminophen 650mg PO [Concomitant]
     Dates: start: 20250326, end: 20250326
  3. Diphenhydramine 50mg PO [Concomitant]
     Dates: start: 20250326, end: 20250326
  4. Methylprednisolone sod succ 100mg IVP [Concomitant]
     Dates: start: 20250326, end: 20250326

REACTIONS (7)
  - Fatigue [None]
  - Constipation [None]
  - Chromaturia [None]
  - Ocular icterus [None]
  - Therapy interrupted [None]
  - Hepatitis [None]
  - Hyperbilirubinaemia [None]

NARRATIVE: CASE EVENT DATE: 20250418
